FAERS Safety Report 9205363 (Version 2)
Quarter: 2013Q2

REPORT INFORMATION
  Report Type: Report from Study
  Country: US (occurrence: US)
  Receive Date: 20130402
  Receipt Date: 20130509
  Transmission Date: 20140414
  Serious: Yes (Other)
  Sender: FDA-Public Use
  Company Number: US-US-EMD SERONO, INC.-7201990

PATIENT
  Sex: Male
  Weight: 51 kg

DRUGS (3)
  1. SAIZEN [(SOMATROPIN (RDNA ORIGIN) FOR INJECTION)] [Suspect]
     Indication: DWARFISM
     Route: 058
     Dates: start: 20110715
  2. SAIZEN [(SOMATROPIN (RDNA ORIGIN) FOR INJECTION)] [Suspect]
     Indication: CYTOGENETIC ABNORMALITY
  3. ZYRTEC                             /00884302/ [Concomitant]
     Indication: PRODUCT USED FOR UNKNOWN INDICATION

REACTIONS (3)
  - Salivary gland fistula [Not Recovered/Not Resolved]
  - Micturition urgency [Recovered/Resolved]
  - Multiple allergies [Unknown]
